FAERS Safety Report 7625333-7 (Version None)
Quarter: 2011Q3

REPORT INFORMATION
  Report Type: 
  Country: None (occurrence: None)
  Receive Date: 20110721
  Receipt Date: 20110718
  Transmission Date: 20111222
  Serious: No
  Sender: FDA-Public Use
  Company Number: US-PFIZER INC-2011162553

PATIENT
  Sex: Female
  Weight: 99.773 kg

DRUGS (3)
  1. ZARONTIN [Suspect]
     Indication: EPILEPSY
     Dosage: UNK
  2. METFORMIN [Concomitant]
     Dosage: UNK
  3. DILANTIN [Concomitant]
     Dosage: UNK

REACTIONS (1)
  - DYSGEUSIA [None]
